FAERS Safety Report 20134196 (Version 1)
Quarter: 2021Q4

REPORT INFORMATION
  Report Type: Spontaneous
  Country: US (occurrence: US)
  Receive Date: 20211201
  Receipt Date: 20211201
  Transmission Date: 20220303
  Serious: No
  Sender: FDA-Public Use
  Company Number: US-JNJFOC-20211133875

PATIENT
  Sex: Male

DRUGS (1)
  1. PEPCID COMPLETE [Suspect]
     Active Substance: CALCIUM CARBONATE\FAMOTIDINE\MAGNESIUM HYDROXIDE
     Indication: Dyspepsia
     Dosage: CHEWED TWO TABLETS IN TOTAL
     Route: 048

REACTIONS (5)
  - Feeling abnormal [Unknown]
  - Dyspepsia [Unknown]
  - Hyperhidrosis [Unknown]
  - Confusional state [Unknown]
  - Somnolence [Unknown]
